FAERS Safety Report 7290627-4 (Version None)
Quarter: 2011Q1

REPORT INFORMATION
  Report Type: 
  Country: None (occurrence: None)
  Receive Date: 20110209
  Receipt Date: 20110209
  Transmission Date: 20110831
  Serious: Yes (Hospitalization)
  Sender: FDA-Public Use
  Company Number: None

PATIENT
  Sex: Female
  Weight: 84 kg

DRUGS (2)
  1. RITUXIMAB (MOAB C2B8 ANTI CD20, CHIMERIC) [Suspect]
     Dosage: 99 MG
     Dates: end: 20110207
  2. FLUDARABINE PHOSPHATE [Suspect]
     Dosage: 50 MG
     Dates: end: 20110207

REACTIONS (7)
  - OXYGEN SATURATION DECREASED [None]
  - BLOOD PRESSURE DIASTOLIC DECREASED [None]
  - FLUSHING [None]
  - DYSPNOEA [None]
  - CHILLS [None]
  - BACK PAIN [None]
  - NAUSEA [None]
